FAERS Safety Report 5425385-9 (Version None)
Quarter: 2007Q3

REPORT INFORMATION
  Report Type: 
  Country: None (occurrence: None)
  Receive Date: 20070824
  Receipt Date: 20070824
  Transmission Date: 20080115
  Serious: Yes (Hospitalization)
  Sender: FDA-Public Use
  Company Number: DE-ROXANE LABORATORIES, INC-2007-DE-04935GD

PATIENT
  Age: 78 Year
  Sex: Female

DRUGS (7)
  1. METAMIZOLE [Suspect]
  2. MIDAZOLAM HCL [Suspect]
  3. DICLOFENAC [Suspect]
  4. DOXYLAMINE [Suspect]
  5. TRAMADOL HCL [Suspect]
  6. PENTOBARBITAL CAP [Suspect]
  7. METOPROLOL SUCCINATE [Suspect]

REACTIONS (2)
  - DRUG TOXICITY [None]
  - RESPIRATORY FAILURE [None]
